FAERS Safety Report 6544750-X (Version None)
Quarter: 2010Q1

REPORT INFORMATION
  Report Type: 
  Country: None (occurrence: None)
  Receive Date: 20100121
  Receipt Date: 20100118
  Transmission Date: 20100710
  Serious: Yes (Hospitalization, Other)
  Sender: FDA-Public Use
  Company Number: US-BAYER-201010700BCC

PATIENT
  Age: 74 Year
  Sex: Female
  Weight: 71 kg

DRUGS (5)
  1. ALEVE (CAPLET) [Suspect]
     Indication: PAIN
     Dosage: TOTAL DAILY DOSE: 220 MG  UNIT DOSE: 220 MG
     Route: 048
     Dates: start: 20100116
  2. ATENOLOL [Concomitant]
     Route: 065
  3. SYNTHROID [Concomitant]
     Route: 065
  4. NEURONTIN [Concomitant]
     Route: 065
  5. NEXIUM [Concomitant]
     Route: 065

REACTIONS (7)
  - ASTHENIA [None]
  - BLOOD PRESSURE DECREASED [None]
  - FEELING HOT [None]
  - HYPERSENSITIVITY [None]
  - PRURITUS GENERALISED [None]
  - SKIN DISCOLOURATION [None]
  - TREMOR [None]
